FAERS Safety Report 19422296 (Version 1)
Quarter: 2021Q2

REPORT INFORMATION
  Report Type: Report from Study
  Country: None (occurrence: US)
  Receive Date: 20210616
  Receipt Date: 20210616
  Transmission Date: 20210717
  Serious: Yes (Hospitalization)
  Sender: FDA-Public Use
  Company Number: US-ABBVIE-21K-163-3948494-00

PATIENT
  Sex: Male

DRUGS (1)
  1. IMBRUVICA [Suspect]
     Active Substance: IBRUTINIB
     Indication: CHRONIC LYMPHOCYTIC LEUKAEMIA
     Route: 048
     Dates: start: 202103

REACTIONS (9)
  - Haemoglobin abnormal [Unknown]
  - Urinary tract infection [Unknown]
  - White blood cell count abnormal [Unknown]
  - Depression [Unknown]
  - Hypophagia [Unknown]
  - Platelet count decreased [Unknown]
  - Chest pain [Unknown]
  - Mental status changes [Unknown]
  - General physical health deterioration [Unknown]

NARRATIVE: CASE EVENT DATE: 2021
